FAERS Safety Report 23866515 (Version 1)
Quarter: 2024Q2

REPORT INFORMATION
  Report Type: Other
  Country: BR (occurrence: None)
  Receive Date: 20240517
  Receipt Date: 20240517
  Transmission Date: 20240716
  Serious: Yes (Hospitalization)
  Sender: FDA-Public Use
  Company Number: BR-ROCHE-3517833

PATIENT
  Age: 15 Year
  Sex: Female
  Weight: 47 kg

DRUGS (13)
  1. PULMOZYME [Suspect]
     Active Substance: DORNASE ALFA
     Indication: Cystic fibrosis
     Route: 065
  2. AZITHROMYCIN [Concomitant]
     Active Substance: AZITHROMYCIN
     Indication: Cystic fibrosis
  3. ALINIA [Concomitant]
     Active Substance: NITAZOXANIDE
     Indication: Cystic fibrosis
  4. PANCREATIN [Concomitant]
     Active Substance: PANCRELIPASE
     Indication: Cystic fibrosis
  5. COLISTIN [Concomitant]
     Active Substance: COLISTIN
     Indication: Cystic fibrosis
  6. OMEPRAZOLE [Concomitant]
     Active Substance: DONEPEZIL HYDROCHLORIDE\OMEPRAZOLE\OMEPRAZOLE MAGNESIUM
     Indication: Cystic fibrosis
  7. DOMPERIDONE [Concomitant]
     Active Substance: DOMPERIDONE
     Indication: Cystic fibrosis
  8. ALBUTEROL [Concomitant]
     Active Substance: ALBUTEROL
     Indication: Cystic fibrosis
  9. COLISTIMETHATE SODIUM [Concomitant]
     Active Substance: COLISTIMETHATE SODIUM
  10. URSODIOL [Concomitant]
     Active Substance: URSODIOL
     Indication: Cystic fibrosis
  11. MINERALS\VITAMINS [Concomitant]
     Active Substance: MINERALS\VITAMINS
     Indication: Cystic fibrosis
  12. NUTREN [Concomitant]
     Indication: Cystic fibrosis
  13. CREON [Concomitant]
     Active Substance: PANCRELIPASE AMYLASE\PANCRELIPASE LIPASE\PANCRELIPASE PROTEASE

REACTIONS (6)
  - COVID-19 [Recovering/Resolving]
  - Pneumonia bacterial [Recovering/Resolving]
  - Type 1 diabetes mellitus [Unknown]
  - Weight decreased [Not Recovered/Not Resolved]
  - Pyrexia [Not Recovered/Not Resolved]
  - Fatigue [Not Recovered/Not Resolved]
